FAERS Safety Report 8551233-4 (Version None)
Quarter: 2012Q3

REPORT INFORMATION
  Report Type: 
  Country: None (occurrence: None)
  Receive Date: 20120730
  Receipt Date: 20120719
  Transmission Date: 20120928
  Serious: Yes (Hospitalization, Other)
  Sender: FDA-Public Use
  Company Number: BR-ELI_LILLY_AND_COMPANY-BR201108006028

PATIENT
  Sex: Female
  Weight: 52 kg

DRUGS (10)
  1. FORTEO [Suspect]
     Dosage: 20 UG, QD
     Route: 058
  2. TRAZODONE HYDROCHLORIDE [Concomitant]
     Indication: INSOMNIA
     Dosage: UNK, UNKNOWN
     Route: 065
  3. MANTIDAN [Concomitant]
     Dosage: UNK, UNKNOWN
     Route: 065
  4. COLECALCIFEROL [Concomitant]
     Indication: OSTEOPOROSIS
     Dosage: UNK, UNKNOWN
     Route: 065
  5. PRAMIPEXOLE DIHYDROCHLORIDE [Concomitant]
     Indication: PARKINSON'S DISEASE
     Dosage: UNK, UNKNOWN
     Route: 065
  6. PROLOPA [Concomitant]
     Indication: PARKINSON'S DISEASE
     Dosage: UNK, UNKNOWN
     Route: 065
  7. PROPRANOLOL [Concomitant]
     Indication: FEELING OF RELAXATION
     Dosage: UNK, UNKNOWN
     Route: 065
  8. RISPERIDONE [Concomitant]
     Dosage: UNK, UNKNOWN
     Route: 065
  9. FORTEO [Suspect]
     Indication: OSTEOPOROSIS
     Dosage: 20 UG, QD
     Route: 058
     Dates: start: 20100701, end: 20110426
  10. SERTRALINA [Concomitant]
     Dosage: UNK, UNKNOWN
     Route: 065

REACTIONS (5)
  - MOBILITY DECREASED [None]
  - SPINAL DISORDER [None]
  - SCIATIC NERVE INJURY [None]
  - DRUG-INDUCED LIVER INJURY [None]
  - NERVE COMPRESSION [None]
